FAERS Safety Report 11233307 (Version 1)
Quarter: 2015Q3

REPORT INFORMATION
  Report Type: Spontaneous
  Country: MX (occurrence: MX)
  Receive Date: 20150702
  Receipt Date: 20150702
  Transmission Date: 20151125
  Serious: Yes (Death)
  Sender: FDA-Public Use
  Company Number: MX-ROCHE-1602161

PATIENT
  Age: 78 Year
  Sex: Female
  Weight: 87 kg

DRUGS (2)
  1. LAPATINIB [Suspect]
     Active Substance: LAPATINIB
     Indication: BREAST CANCER
     Route: 065
     Dates: start: 20150126, end: 20150518
  2. XELODA [Suspect]
     Active Substance: CAPECITABINE
     Indication: BREAST CANCER
     Dosage: 5 CYCLES ADMINISTERED
     Route: 065
     Dates: start: 20150126, end: 20150518

REACTIONS (1)
  - Death [Fatal]
